FAERS Safety Report 21254001 (Version 1)
Quarter: 2022Q3

REPORT INFORMATION
  Report Type: Spontaneous
  Country: CN (occurrence: None)
  Receive Date: 20220825
  Receipt Date: 20220825
  Transmission Date: 20221027
  Serious: Yes (Other)
  Sender: FDA-Public Use
  Company Number: CN-ROCHE-3166302

PATIENT
  Age: 45 Year
  Sex: Male

DRUGS (18)
  1. RITUXIMAB [Suspect]
     Active Substance: RITUXIMAB
     Indication: B-cell lymphoma
     Dosage: DAY1, 15
     Route: 065
     Dates: start: 20200802
  2. RITUXIMAB [Suspect]
     Active Substance: RITUXIMAB
     Dosage: DAY1, 26
     Route: 065
     Dates: start: 20200903
  3. RITUXIMAB [Suspect]
     Active Substance: RITUXIMAB
     Dosage: DAY1; 06-NOV-2020, 13-JAN-2021
     Route: 065
  4. METHOTREXATE [Concomitant]
     Active Substance: METHOTREXATE
     Indication: B-cell lymphoma
     Dosage: DAY 2, 16, 3 HOURS
     Dates: start: 20200802
  5. METHOTREXATE [Concomitant]
     Active Substance: METHOTREXATE
     Dosage: DAY 2, 27, 3 HOURS
     Dates: start: 20200903
  6. METHOTREXATE [Concomitant]
     Active Substance: METHOTREXATE
     Dates: start: 20201106, end: 20210113
  7. ZANUBRUTINIB [Concomitant]
     Active Substance: ZANUBRUTINIB
     Indication: B-cell lymphoma
     Dosage: DAY5-12; 80MG QD DAY13-15, 20-33
     Dates: start: 20200802
  8. ZANUBRUTINIB [Concomitant]
     Active Substance: ZANUBRUTINIB
     Dosage: DAY5-26, 30-64
     Dates: start: 20200903
  9. ZANUBRUTINIB [Concomitant]
     Active Substance: ZANUBRUTINIB
     Dosage: FROM DAY5
     Dates: start: 20210113
  10. BIAPENEM [Concomitant]
     Active Substance: BIAPENEM
     Indication: Anti-infective therapy
     Dates: start: 2020
  11. CASPOFUNGIN [Concomitant]
     Active Substance: CASPOFUNGIN
     Indication: Anti-infective therapy
     Dates: start: 2020
  12. VORICONAZOLE [Concomitant]
     Active Substance: VORICONAZOLE
     Indication: Anti-infective therapy
     Dates: start: 2020
  13. CEFOPERAZONE SODIUM\SULBACTAM SODIUM [Concomitant]
     Active Substance: CEFOPERAZONE SODIUM\SULBACTAM SODIUM
     Indication: Anti-infective therapy
     Dates: start: 2020
  14. CEFIXIME [Concomitant]
     Active Substance: CEFIXIME
     Indication: Anti-infective therapy
     Dates: start: 2020
  15. METHYLPREDNISOLONE SODIUM SUCCINATE [Concomitant]
     Active Substance: METHYLPREDNISOLONE SODIUM SUCCINATE
     Indication: B-cell lymphoma
     Dates: start: 20200718
  16. METHYLPREDNISOLONE SODIUM SUCCINATE [Concomitant]
     Active Substance: METHYLPREDNISOLONE SODIUM SUCCINATE
     Dates: start: 202007
  17. FLUNARIZINE HYDROCHLORIDE [Concomitant]
     Active Substance: FLUNARIZINE HYDROCHLORIDE
     Indication: Dizziness
     Dates: start: 2020
  18. VINCAMINE [Concomitant]
     Active Substance: VINCAMINE
     Indication: Dizziness
     Dates: start: 2020

REACTIONS (2)
  - Renal impairment [Recovering/Resolving]
  - Heart rate decreased [Recovering/Resolving]
